FAERS Safety Report 6393338-2 (Version None)
Quarter: 2009Q4

REPORT INFORMATION
  Report Type: 
  Country: None (occurrence: None)
  Receive Date: 20091008
  Receipt Date: 20091005
  Transmission Date: 20100525
  Serious: Yes (Disabling)
  Sender: FDA-Public Use
  Company Number: CH-WYE-G04364209

PATIENT
  Age: 54 Year
  Sex: Male

DRUGS (1)
  1. EFFEXOR [Suspect]
     Indication: MAJOR DEPRESSION
     Route: 048
     Dates: start: 20090101, end: 20090701

REACTIONS (1)
  - ANOSMIA [None]
